FAERS Safety Report 6883439-4 (Version None)
Quarter: 2010Q3

REPORT INFORMATION
  Report Type: 
  Country: None (occurrence: None)
  Receive Date: 20100727
  Receipt Date: 20100719
  Transmission Date: 20110219
  Serious: Yes (Hospitalization)
  Sender: FDA-Public Use
  Company Number: 2010MA000982

PATIENT
  Age: 16 Year
  Sex: Female

DRUGS (7)
  1. FEVERALL [Suspect]
     Dosage: 1 G;QID
     Dates: start: 20030313, end: 20030326
  2. METRONIDAZOLE [Concomitant]
  3. CIPROFLOXACIN [Concomitant]
  4. CONFORTID [Concomitant]
  5. DICLON [Concomitant]
  6. SEVORANE [Concomitant]
  7. SUPRANE [Concomitant]

REACTIONS (2)
  - GENERAL PHYSICAL CONDITION ABNORMAL [None]
  - LIVER DISORDER [None]
